FAERS Safety Report 25163881 (Version 2)
Quarter: 2025Q4

REPORT INFORMATION
  Report Type: Spontaneous
  Country: EU (occurrence: EU)
  Receive Date: 20250405
  Receipt Date: 20251226
  Transmission Date: 20260118
  Serious: Yes (Hospitalization, Other)
  Sender: AUROBINDO
  Company Number: EU-009507513-2267084

PATIENT
  Age: 68 Year
  Sex: Male
  Weight: 65 kg

DRUGS (4)
  1. CARBOPLATIN [Suspect]
     Active Substance: CARBOPLATIN
     Indication: Non-small cell lung cancer
     Dosage: 650 MILLIGRAM (THERAPY LINE: LINE 1DAILY DOSE: 650 MG)
     Route: 065
     Dates: start: 20250211, end: 20250211
  2. PEMETREXED [Suspect]
     Active Substance: PEMETREXED
     Indication: Non-small cell lung cancer
     Dosage: 950 MILLIGRAM (THERAPIE LINE: LINE 1DAILY DOSE: 950 MG)
     Route: 065
     Dates: start: 20250211, end: 20250211
  3. PEMBROLIZUMAB [Suspect]
     Active Substance: PEMBROLIZUMAB
     Indication: Non-small cell lung cancer
     Dosage: 200 MILLIGRAM (THERAPY LINE: LINE 1DAILY DOSE (MG) 200)
     Route: 065
     Dates: start: 20250211, end: 20250211
  4. PEMBROLIZUMAB [Suspect]
     Active Substance: PEMBROLIZUMAB
     Dosage: 200 MILLIGRAM (THERAPY LINE: LINE 1DAILY DOSE (MG) 200)
     Route: 065
     Dates: start: 20250211, end: 20250415

REACTIONS (2)
  - Sepsis [Recovering/Resolving]
  - Peripheral ischaemia [Recovering/Resolving]

NARRATIVE: CASE EVENT DATE: 20250226
